FAERS Safety Report 4658459-0 (Version None)
Quarter: 2005Q2

REPORT INFORMATION
  Report Type: 
  Country: None (occurrence: None)
  Receive Date: 20050511
  Receipt Date: 20041203
  Transmission Date: 20051028
  Serious: Yes (Other)
  Sender: FDA-Public Use
  Company Number: GB-GLAXOSMITHKLINE-B0359580A

PATIENT
  Sex: Male

DRUGS (4)
  1. PAROXETINE HCL [Suspect]
     Indication: DEPRESSION
     Dosage: 20MG PER DAY
     Route: 048
     Dates: start: 19980311, end: 19980405
  2. ACETAMINOPHEN [Concomitant]
     Route: 065
  3. IBUPROFEN [Concomitant]
     Route: 065
  4. COCAINE [Concomitant]
     Route: 065

REACTIONS (5)
  - BRUXISM [None]
  - DECREASED APPETITE [None]
  - MULTIPLE DRUG OVERDOSE [None]
  - MYDRIASIS [None]
  - SUICIDE ATTEMPT [None]
